FAERS Safety Report 7708765-8 (Version None)
Quarter: 2011Q3

REPORT INFORMATION
  Report Type: 
  Country: None (occurrence: None)
  Receive Date: 20110825
  Receipt Date: 20110825
  Transmission Date: 20111222
  Serious: Yes (Other)
  Sender: FDA-Public Use
  Company Number: None

PATIENT
  Age: 76 Year
  Sex: Male
  Weight: 106 kg

DRUGS (1)
  1. DABIGATRAN [Suspect]
     Indication: ATRIAL FIBRILLATION
     Dosage: 150MG AND 75MG
     Route: 048
     Dates: start: 20110717, end: 20110823

REACTIONS (5)
  - OESOPHAGEAL CANDIDIASIS [None]
  - GASTROINTESTINAL HAEMORRHAGE [None]
  - DIVERTICULUM [None]
  - COLON ADENOMA [None]
  - CREATININE RENAL CLEARANCE DECREASED [None]
